FAERS Safety Report 22141797 (Version 1)
Quarter: 2023Q1

REPORT INFORMATION
  Report Type: Spontaneous
  Country: US (occurrence: None)
  Receive Date: 20230326
  Receipt Date: 20230326
  Transmission Date: 20230417
  Serious: Yes (Hospitalization, Disabling, Other)
  Sender: FDA-Public Use
  Company Number: None

PATIENT
  Age: 48 Year
  Sex: Male
  Weight: 108 kg

DRUGS (3)
  1. SYSTANE LUBRICANT [Suspect]
     Active Substance: POLYETHYLENE GLYCOL 400\PROPYLENE GLYCOL
     Indication: Eye pain
     Dosage: FREQUENCY : TWICE A DAY;?
     Route: 047
     Dates: start: 20230116, end: 20230130
  2. SYSTANE LUBRICANT [Suspect]
     Active Substance: POLYETHYLENE GLYCOL 400\PROPYLENE GLYCOL
     Indication: Ocular hyperaemia
  3. SYSTANE LUBRICANT [Suspect]
     Active Substance: POLYETHYLENE GLYCOL 400\PROPYLENE GLYCOL
     Indication: Visual impairment

REACTIONS (5)
  - Photophobia [None]
  - Halo vision [None]
  - Vision blurred [None]
  - Therapeutic product effect decreased [None]
  - Optic neuritis [None]

NARRATIVE: CASE EVENT DATE: 20230201
